FAERS Safety Report 4636044-4 (Version None)
Quarter: 2005Q1

REPORT INFORMATION
  Report Type: 
  Country: None (occurrence: None)
  Receive Date: 20050325
  Receipt Date: 20050121
  Transmission Date: 20050727
  Serious: No
  Sender: FDA-Public Use
  Company Number: USA041286574

PATIENT
  Age: 82 Year
  Sex: Female
  Weight: 69 kg

DRUGS (11)
  1. FORTEO [Suspect]
     Indication: BONE DENSITY DECREASED
     Dosage: 20 UG/ 1 DAY
     Dates: start: 20040901
  2. DOLOBID [Concomitant]
  3. PRILOSEC (OMEPRAZOLE RATIOPHARM) [Concomitant]
  4. SYNTHROID [Concomitant]
  5. LISINOPRIL [Concomitant]
  6. CALCIUM GLUCONATE [Concomitant]
  7. VITAMINS NOS [Concomitant]
  8. HYDROCHLOROTHIAZIDE [Concomitant]
  9. GUAIFENESIN (GUAIFENESIN L.A.) [Concomitant]
  10. IMODIUM [Concomitant]
  11. GLUCOSAMINE [Concomitant]

REACTIONS (2)
  - BLOOD ALKALINE PHOSPHATASE INCREASED [None]
  - HEPATIC ENZYME INCREASED [None]
